FAERS Safety Report 17795002 (Version 1)
Quarter: 2020Q2

REPORT INFORMATION
  Report Type: Spontaneous
  Country: GB (occurrence: GB)
  Receive Date: 20200515
  Receipt Date: 20200515
  Transmission Date: 20200714
  Serious: Yes (Other)
  Sender: FDA-Public Use
  Company Number: GB-009507513-2005GBR004760

PATIENT
  Age: 27 Year
  Sex: Female

DRUGS (1)
  1. NEXPLANON [Suspect]
     Active Substance: ETONOGESTREL
     Indication: CONTRACEPTION
     Dosage: 1 IMPLANT
     Route: 059
     Dates: start: 20191218

REACTIONS (5)
  - Abortion spontaneous [Unknown]
  - Menorrhagia [Unknown]
  - Mood swings [Unknown]
  - Maternal exposure during pregnancy [Recovered/Resolved]
  - Acne [Unknown]

NARRATIVE: CASE EVENT DATE: 202003
